FAERS Safety Report 12347661 (Version 2)
Quarter: 2016Q2

REPORT INFORMATION
  Report Type: Report from Study
  Country: TW (occurrence: TW)
  Receive Date: 20160509
  Receipt Date: 20160603
  Transmission Date: 20160815
  Serious: Yes (Death, Hospitalization)
  Sender: FDA-Public Use
  Company Number: TW-JNJFOC-20160500547

PATIENT
  Age: 59 Year
  Sex: Male
  Weight: 61 kg

DRUGS (4)
  1. STELARA [Suspect]
     Active Substance: USTEKINUMAB
     Indication: PSORIASIS
     Route: 058
     Dates: start: 20130719
  2. STELARA [Suspect]
     Active Substance: USTEKINUMAB
     Indication: PSORIASIS
     Dosage: HAD 13 DOSES OF USTEKINUMAB
     Route: 058
     Dates: end: 20160316
  3. METHOTREXATE [Concomitant]
     Active Substance: METHOTREXATE
     Route: 065
     Dates: start: 20130624, end: 20160316
  4. STELARA [Suspect]
     Active Substance: USTEKINUMAB
     Indication: PSORIASIS
     Route: 058

REACTIONS (12)
  - Pancreatic carcinoma metastatic [Fatal]
  - Hepatic cancer metastatic [Unknown]
  - Hepatic necrosis [Fatal]
  - Acute kidney injury [Fatal]
  - Hepatic failure [Fatal]
  - Coagulopathy [Fatal]
  - Upper gastrointestinal haemorrhage [Fatal]
  - Post procedural discharge [Unknown]
  - Sepsis [Fatal]
  - Jaundice [Unknown]
  - Abdominal infection [Fatal]
  - Anaemia [Unknown]

NARRATIVE: CASE EVENT DATE: 201603
